FAERS Safety Report 11986361 (Version 1)
Quarter: 2016Q1

REPORT INFORMATION
  Report Type: Spontaneous
  Country: US (occurrence: US)
  Receive Date: 20160202
  Receipt Date: 20160202
  Transmission Date: 20160526
  Serious: Yes (Death, Hospitalization)
  Sender: FDA-Public Use
  Company Number: US-HOSPIRA-3150800

PATIENT
  Age: 28 Year
  Sex: Male

DRUGS (7)
  1. METOCLOPRAMIDE. [Concomitant]
     Active Substance: METOCLOPRAMIDE
     Indication: VOMITING
     Route: 042
  2. ALLOPURINOL. [Concomitant]
     Active Substance: ALLOPURINOL
     Indication: HYPERURICAEMIA
  3. METOCLOPRAMIDE. [Concomitant]
     Active Substance: METOCLOPRAMIDE
     Indication: NAUSEA
     Route: 042
  4. DIPHENHYDRAMINE. [Concomitant]
     Active Substance: DIPHENHYDRAMINE
     Indication: PRURITUS
  5. DIAZEPAM. [Concomitant]
     Active Substance: DIAZEPAM
     Indication: PRURITUS
  6. CYTARABINE. [Suspect]
     Active Substance: CYTARABINE
     Indication: LEUKAEMIA RECURRENT
     Route: 042
  7. DEXAMETHASONE. [Concomitant]
     Active Substance: DEXAMETHASONE
     Indication: PRURITUS

REACTIONS (10)
  - Hepatorenal syndrome [Fatal]
  - Gastrointestinal sounds abnormal [Unknown]
  - Arrhythmia [Fatal]
  - Abdominal pain [Unknown]
  - Hyperbilirubinaemia [Fatal]
  - Pulmonary oedema [Unknown]
  - Diarrhoea haemorrhagic [Unknown]
  - Cardiac arrest [Fatal]
  - Hepatic encephalopathy [Unknown]
  - Diarrhoea [Unknown]
